FAERS Safety Report 19140669 (Version 1)
Quarter: 2021Q2

REPORT INFORMATION
  Report Type: Spontaneous
  Country: FR (occurrence: FR)
  Receive Date: 20210415
  Receipt Date: 20210415
  Transmission Date: 20210717
  Serious: Yes (Hospitalization)
  Sender: FDA-Public Use
  Company Number: FR-TEVA-2021-FR-1900700

PATIENT
  Age: 57 Year
  Sex: Female
  Weight: 59.5 kg

DRUGS (10)
  1. EPLERENONE. [Suspect]
     Active Substance: EPLERENONE
     Indication: STRESS CARDIOMYOPATHY
     Dosage: 25MG
     Route: 048
     Dates: start: 20201114
  2. RAMIPRIL. [Suspect]
     Active Substance: RAMIPRIL
     Indication: STRESS CARDIOMYOPATHY
     Dosage: 2.5MG
     Route: 048
     Dates: start: 20201114
  3. CARDENSIEL 1,25 MG, COMPRIME PELLICULE [Suspect]
     Active Substance: BISOPROLOL FUMARATE
     Indication: STRESS CARDIOMYOPATHY
     Dosage: 1.25MG
     Route: 048
     Dates: start: 20201114
  4. FUROSEMIDE. [Suspect]
     Active Substance: FUROSEMIDE
     Indication: STRESS CARDIOMYOPATHY
     Dosage: 20MG
     Route: 048
     Dates: start: 20201114
  5. DAFALGAN [Concomitant]
     Active Substance: ACETAMINOPHEN
     Dosage: 2GM
  6. DAFALGAN CODEINE [Suspect]
     Active Substance: ACETAMINOPHEN\CODEINE PHOSPHATE
     Indication: PAIN
     Dosage: 1DF
     Route: 048
     Dates: end: 20210316
  7. SEROPLEX 10 MG, COMPRIME PELLICULE SECABLE [Concomitant]
     Active Substance: ESCITALOPRAM OXALATE
     Dosage: 1DF
  8. NUCTALON 2 MG, COMPRIME [Concomitant]
     Active Substance: ESTAZOLAM
     Dosage: 1DF
  9. ALPRAZOLAM. [Concomitant]
     Active Substance: ALPRAZOLAM
     Dosage: 0.5MG
  10. KARDEGIC [Suspect]
     Active Substance: ASPIRIN DL-LYSINE
     Indication: STRESS CARDIOMYOPATHY
     Dosage: 1.25MG
     Route: 048
     Dates: start: 20201114

REACTIONS (1)
  - Pancreatitis acute [Recovering/Resolving]

NARRATIVE: CASE EVENT DATE: 20210315
